FAERS Safety Report 5920552-X (Version None)
Quarter: 2008Q4

REPORT INFORMATION
  Report Type: 
  Country: None (occurrence: None)
  Receive Date: 20081015
  Receipt Date: 20081015
  Transmission Date: 20090506
  Serious: Yes (Hospitalization)
  Sender: FDA-Public Use
  Company Number: None

PATIENT
  Sex: Male
  Weight: 73.6 kg

DRUGS (8)
  1. METHOTREXATE [Suspect]
     Dosage: 6 G
  2. RITUXIMAB (MOAB C2B8 ANTI CD20, CHIMERIC) [Suspect]
     Dosage: 700 MG
  3. TEMOZOLOMIDE [Suspect]
     Dosage: 1800 MG
  4. DILAUDID [Concomitant]
  5. VANCOMYCIN HYDROCHLORIDE [Concomitant]
  6. PHENERGAN HCL [Concomitant]
  7. XANAX [Concomitant]
  8. INSULIN [Concomitant]

REACTIONS (11)
  - CSF GLUCOSE DECREASED [None]
  - CSF PROTEIN INCREASED [None]
  - CSF WHITE BLOOD CELL COUNT INCREASED [None]
  - DYSPNOEA [None]
  - HEADACHE [None]
  - HYDROCEPHALUS [None]
  - LUNG INFILTRATION [None]
  - MENINGEAL DISORDER [None]
  - NAUSEA [None]
  - PYREXIA [None]
  - XANTHOCHROMIA [None]
